FAERS Safety Report 11281706 (Version 5)
Quarter: 2020Q1

REPORT INFORMATION
  Report Type: Spontaneous
  Country: US (occurrence: US)
  Receive Date: 20150717
  Receipt Date: 20200217
  Transmission Date: 20200409
  Serious: Yes (Congenital Anomaly, Other)
  Sender: FDA-Public Use
  Company Number: US-APOTEX-2014AP002920

PATIENT
  Sex: Male

DRUGS (2)
  1. PAXIL [Suspect]
     Active Substance: PAROXETINE HYDROCHLORIDE
     Indication: PRODUCT USED FOR UNKNOWN INDICATION
     Dosage: UNK
     Route: 064
  2. PAXIL [Suspect]
     Active Substance: PAROXETINE HYDROCHLORIDE
     Indication: FIBROMYALGIA
     Dosage: UNK, U
     Route: 064

REACTIONS (12)
  - Heart disease congenital [Not Recovered/Not Resolved]
  - Atrial tachycardia [Unknown]
  - Foetal exposure during pregnancy [Unknown]
  - Left ventricular hypertrophy [Unknown]
  - Injury [Unknown]
  - Cryptorchism [Unknown]
  - Congenital aortic stenosis [Unknown]
  - Testicular disorder [Unknown]
  - Neurofibromatosis [Unknown]
  - Subvalvular aortic stenosis [Unknown]
  - Testicular torsion [Unknown]
  - Congenital aortic valve incompetence [Unknown]
